FAERS Safety Report 23118302 (Version 1)
Quarter: 2023Q4

REPORT INFORMATION
  Report Type: Spontaneous
  Country: JP (occurrence: JP)
  Receive Date: 20231028
  Receipt Date: 20231028
  Transmission Date: 20240109
  Serious: Yes (Hospitalization, Other)
  Sender: FDA-Public Use
  Company Number: JP-002147023-PHHY2012JP090756

PATIENT
  Age: 36 Year
  Sex: Female
  Weight: 66 kg

DRUGS (7)
  1. CYCLOSPORINE [Suspect]
     Active Substance: CYCLOSPORINE
     Indication: Glomerulonephritis membranous
     Dosage: STARTED ON DAY 49
     Route: 048
     Dates: start: 2011, end: 2011
  2. CYCLOSPORINE [Suspect]
     Active Substance: CYCLOSPORINE
     Indication: Glomerulonephritis membranous
     Dosage: REDUCED ON DAY 86
     Route: 048
  3. PREDNISOLONE [Suspect]
     Active Substance: PREDNISOLONE
     Indication: Glomerulonephritis membranous
     Dosage: INCREASED TO 60 MG/ DAY ON DAY 29
     Route: 065
     Dates: start: 2011, end: 2011
  4. PREDNISOLONE [Suspect]
     Active Substance: PREDNISOLONE
     Indication: Glomerulonephritis membranous
     Dosage: INITIATED ON DAY 14 OF HOSPITALIZATION,
     Route: 065
     Dates: start: 2011, end: 2011
  5. PREDNISOLONE [Suspect]
     Active Substance: PREDNISOLONE
     Indication: Glomerulonephritis membranous
     Dosage: REDUCED ON DAY 86
     Route: 065
  6. MIZORIBINE [Suspect]
     Active Substance: MIZORIBINE
     Indication: Glomerulonephritis membranous
     Dosage: STARTED ON DAY 28,
     Route: 065
     Dates: start: 2011, end: 2011
  7. MIZORIBINE [Suspect]
     Active Substance: MIZORIBINE
     Indication: Glomerulonephritis membranous
     Dosage: REDUCED ON DAY 86
     Route: 065

REACTIONS (2)
  - Varicella zoster virus infection [Unknown]
  - Off label use [Unknown]

NARRATIVE: CASE EVENT DATE: 20110101
